FAERS Safety Report 10700259 (Version 2)
Quarter: 2015Q1

REPORT INFORMATION
  Report Type: Spontaneous
  Country: JP (occurrence: JP)
  Receive Date: 20150109
  Receipt Date: 20150109
  Transmission Date: 20150721
  Serious: Yes (Death, Hospitalization)
  Sender: FDA-Public Use
  Company Number: PHBS2002JP07968

PATIENT
  Age: 78 Year
  Sex: Female

DRUGS (7)
  1. GLIVEC [Suspect]
     Active Substance: IMATINIB MESYLATE
     Dosage: 200 MG, QD
     Route: 048
     Dates: start: 20010927
  2. EUGLUCON [Concomitant]
     Active Substance: GLYBURIDE
     Indication: PRODUCT USED FOR UNKNOWN INDICATION
     Dosage: UNK
     Route: 065
     Dates: start: 20010918, end: 20020103
  3. GLIVEC [Suspect]
     Active Substance: IMATINIB MESYLATE
     Dosage: 600 MG, QD
     Route: 048
     Dates: start: 20011231
  4. ALDACTONE [Concomitant]
     Active Substance: SPIRONOLACTONE
     Indication: PRODUCT USED FOR UNKNOWN INDICATION
     Dosage: UNK
     Route: 065
     Dates: start: 20010918, end: 20020103
  5. GLUCAGON. [Concomitant]
     Active Substance: GLUCAGON
     Indication: PRODUCT USED FOR UNKNOWN INDICATION
     Dosage: UNK
     Route: 065
     Dates: start: 20010918, end: 20020103
  6. GLIVEC [Suspect]
     Active Substance: IMATINIB MESYLATE
     Indication: CHRONIC MYELOID LEUKAEMIA
     Dosage: 400 MG, QD
     Route: 048
     Dates: start: 20010918, end: 20010926
  7. GLIVEC [Suspect]
     Active Substance: IMATINIB MESYLATE
     Dosage: 300 MG, QD
     Route: 048
     Dates: start: 20010927

REACTIONS (12)
  - Malaise [Unknown]
  - Oedema peripheral [Recovering/Resolving]
  - Pneumonia [Unknown]
  - Diarrhoea [Unknown]
  - Chronic myeloid leukaemia [Fatal]
  - C-reactive protein increased [Recovering/Resolving]
  - Feeling hot [Recovered/Resolved]
  - Altered state of consciousness [Fatal]
  - Gait disturbance [Recovering/Resolving]
  - Blast cell crisis [Fatal]
  - Pain [Recovering/Resolving]
  - Erythema [Recovered/Resolved]

NARRATIVE: CASE EVENT DATE: 200109
